FAERS Safety Report 5635040-8 (Version None)
Quarter: 2008Q1

REPORT INFORMATION
  Report Type: 
  Country: None (occurrence: None)
  Receive Date: 20080221
  Receipt Date: 20080221
  Transmission Date: 20080703
  Serious: No
  Sender: FDA-Public Use
  Company Number: None

PATIENT
  Age: 53 Year
  Sex: Female
  Weight: 58.9676 kg

DRUGS (1)
  1. CLARITHROMYCIN EXTENDED RELEASE [Suspect]
     Indication: PNEUMONIA
     Dosage: 500 MG  2 X A DAY
     Dates: start: 20080216, end: 20080219

REACTIONS (9)
  - DIZZINESS [None]
  - FEELING ABNORMAL [None]
  - HEADACHE [None]
  - MALAISE [None]
  - NAUSEA [None]
  - NIGHT SWEATS [None]
  - NIGHTMARE [None]
  - RASH PRURITIC [None]
  - TREMOR [None]
